FAERS Safety Report 21488368 (Version 1)
Quarter: 2022Q4

REPORT INFORMATION
  Report Type: Spontaneous
  Country: GB (occurrence: GB)
  Receive Date: 20221021
  Receipt Date: 20221021
  Transmission Date: 20230113
  Serious: Yes (Other)
  Sender: FDA-Public Use
  Company Number: None

PATIENT
  Age: 55 Year
  Sex: Male
  Weight: 99.9 kg

DRUGS (23)
  1. SULFASALAZINE [Suspect]
     Active Substance: SULFASALAZINE
     Dosage: UNK, (TOOK IT FOR APPROXIMATELY 2 MONTHS THEN STOPPED)
     Dates: start: 202112, end: 2022
  2. SULFASALAZINE [Suspect]
     Active Substance: SULFASALAZINE
     Dosage: UNK, (RESTARTED AT A LOWER DOSE)
     Dates: start: 2022, end: 2022
  3. DOXYCYCLINE [Concomitant]
     Active Substance: DOXYCYCLINE
     Dosage: 2 DF, (2 IMMEDIATELY THEN 1 DAILY)
     Dates: start: 20220426
  4. DOXYCYCLINE [Concomitant]
     Active Substance: DOXYCYCLINE
     Dosage: 1 DF, DAILY  (2 IMMEDIATELY THEN 1 DAILY)
     Dates: start: 20220426
  5. FOLIC ACID [Concomitant]
     Active Substance: FOLIC ACID
     Dosage: 5 MG, 1X/DAY (ON 6 DAYS OF THE WEEK (DO NOT TAKE ON THE SAME DAY AS METHOTREXATE)
     Dates: start: 20220323
  6. BECLOMETHASONE\FORMOTEROL [Concomitant]
     Active Substance: BECLOMETHASONE\FORMOTEROL
     Dosage: 2 DF, 2X/DAY
     Route: 055
     Dates: start: 20220309
  7. HYDROXOCOBALAMIN [Concomitant]
     Active Substance: HYDROXOCOBALAMIN
     Dosage: 1 MG/ML, SINGLE (IMMEADIATE)
     Dates: start: 20220408
  8. IBUPROFEN [Concomitant]
     Active Substance: IBUPROFEN
     Dosage: 400 MG, 3X/DAY (WHEN REQUIRED)
     Dates: start: 20211230
  9. JUVELA [Concomitant]
     Active Substance: .ALPHA.-TOCOPHEROL\RETINOL
     Dosage: 6 IU
     Dates: start: 20220118
  10. LEFLUNOMIDE [Concomitant]
     Active Substance: LEFLUNOMIDE
     Dosage: 10 MG, 1X/DAY (10MG INCREASED TO 20MG ON 20/09/22)
     Dates: start: 20220721
  11. LEFLUNOMIDE [Concomitant]
     Active Substance: LEFLUNOMIDE
     Dosage: 20 MG, 1X/DAY (10MG INCREASED TO 20MG ON 20/09/22)
     Dates: start: 20220920
  12. METHOTREXATE [Concomitant]
     Active Substance: METHOTREXATE
     Dosage: 10 MG, WEEKLY
     Dates: start: 20220323
  13. MONTELUKAST [Concomitant]
     Active Substance: MONTELUKAST SODIUM
     Dosage: 10 MG, 1X/DAY
     Dates: start: 20220311
  14. METHOTREXATE SODIUM [Concomitant]
     Active Substance: METHOTREXATE SODIUM
     Dosage: 10 MG, WEEKLY (0.2ML)
     Dates: start: 20220609, end: 20220624
  15. OMEPRAZOLE [Concomitant]
     Active Substance: OMEPRAZOLE
     Dosage: 20 MG, 1X/DAY
     Dates: start: 20211230
  16. PREDNISOLONE [Concomitant]
     Active Substance: PREDNISOLONE
     Dosage: 6 DF, DAILY (6 OR 8 TABS DAILY FOR 5 DAYS)
     Dates: start: 20220127
  17. PREDNISOLONE [Concomitant]
     Active Substance: PREDNISOLONE
     Dosage: 8 DF, DAILY (6 OR 8 TABS DAILY FOR 5 DAYS)
     Dates: start: 20220127
  18. PROCHLORPERAZINE [Concomitant]
     Active Substance: PROCHLORPERAZINE
     Dosage: 5 MG, 3X/DAY
     Dates: start: 20220729
  19. SERTRALINE [Concomitant]
     Active Substance: SERTRALINE HYDROCHLORIDE
     Dosage: 50 MG, 1X/DAY (50MG AND 100MG)
     Dates: start: 20220414
  20. SERTRALINE [Concomitant]
     Active Substance: SERTRALINE HYDROCHLORIDE
     Dosage: 100 MG, 1X/DAY (50MG AND 100MG)
     Dates: start: 20220414
  21. VENTOLIN [Concomitant]
     Active Substance: ALBUTEROL SULFATE
     Dosage: 2 DF, AS NEEDED (100MICROGRAMS/DOSE2 PPRN- SEE GP IF NEEDING MORE THAN 3 TIMES PER WEEK)
     Route: 055
     Dates: start: 20220210
  22. ACETAMINOPHEN\CODEINE PHOSPHATE [Concomitant]
     Active Substance: ACETAMINOPHEN\CODEINE PHOSPHATE
     Dosage: 1 DF, AS NEEDED (TAKE ONE OR TWO UPTO FOUR TIMES A DAY WHEN REQUIRED)
     Dates: start: 20220330
  23. ACETAMINOPHEN\CODEINE PHOSPHATE [Concomitant]
     Active Substance: ACETAMINOPHEN\CODEINE PHOSPHATE
     Dosage: 2 DF, AS NEEDED (TAKE ONE OR TWO UPTO FOUR TIMES A DAY WHEN REQUIRED)
     Dates: start: 20220330

REACTIONS (4)
  - Rectal haemorrhage [Unknown]
  - Dyspnoea [Unknown]
  - Asthma [Recovering/Resolving]
  - Gastrooesophageal reflux disease [Recovering/Resolving]

NARRATIVE: CASE EVENT DATE: 20211209
